FAERS Safety Report 25648691 (Version 1)
Quarter: 2025Q3

REPORT INFORMATION
  Report Type: Spontaneous
  Country: US (occurrence: US)
  Receive Date: 20250806
  Receipt Date: 20250806
  Transmission Date: 20251021
  Serious: No
  Sender: SANDOZ
  Company Number: US-SANDOZ-SDZ2025US055631

PATIENT
  Sex: Female

DRUGS (3)
  1. AZITHROMYCIN [Suspect]
     Active Substance: AZITHROMYCIN
     Indication: Product used for unknown indication
     Dosage: 500 MG, TIW
     Route: 048
  2. MOXIFLOXACIN [Suspect]
     Active Substance: MOXIFLOXACIN
     Indication: Product used for unknown indication
     Dosage: 400 MG, TIW
     Route: 048
  3. RIFABUTIN [Suspect]
     Active Substance: RIFABUTIN
     Indication: Product used for unknown indication
     Route: 065

REACTIONS (1)
  - Liver disorder [Unknown]
